FAERS Safety Report 24860700 (Version 2)
Quarter: 2025Q1

REPORT INFORMATION
  Report Type: Spontaneous
  Country: US (occurrence: US)
  Receive Date: 20250120
  Receipt Date: 20250127
  Transmission Date: 20250409
  Serious: No
  Sender: KARYOPHARM THERAPEUTICS
  Company Number: US-KARYOPHARM-2025KPT000059

PATIENT

DRUGS (1)
  1. XPOVIO [Suspect]
     Active Substance: SELINEXOR
     Indication: Plasma cell myeloma refractory
     Dosage: 80 MG, 2X/WEEK
     Route: 048
     Dates: start: 20250113, end: 20250120

REACTIONS (6)
  - Pain in extremity [Unknown]
  - Balance disorder [Unknown]
  - Fall [Unknown]
  - Head injury [Unknown]
  - Constipation [Unknown]
  - Fatigue [Unknown]

NARRATIVE: CASE EVENT DATE: 20250101
